FAERS Safety Report 13768743 (Version 1)
Quarter: 2017Q3

REPORT INFORMATION
  Report Type: Spontaneous
  Country: FR (occurrence: FR)
  Receive Date: 20170719
  Receipt Date: 20170719
  Transmission Date: 20171127
  Serious: Yes (Hospitalization)
  Sender: FDA-Public Use
  Company Number: FR-ROCHE-1964068

PATIENT
  Age: 53 Year
  Sex: Female

DRUGS (8)
  1. ROACTEMRA [Suspect]
     Active Substance: TOCILIZUMAB
     Route: 041
     Dates: start: 20161205
  2. AMLOR [Suspect]
     Active Substance: AMLODIPINE BESYLATE
     Route: 048
     Dates: start: 201610
  3. ROACTEMRA [Suspect]
     Active Substance: TOCILIZUMAB
     Indication: RHEUMATOID ARTHRITIS
     Route: 041
     Dates: start: 20150501
  4. METHOTREXATE. [Concomitant]
     Active Substance: METHOTREXATE
     Indication: RHEUMATOID ARTHRITIS
     Route: 065
     Dates: start: 20120318
  5. VALSARTAN/HYDROCHLOROTHIAZIDE AHCL [Concomitant]
     Indication: HYPERTENSION
     Route: 065
     Dates: start: 201604
  6. LASILIX [Concomitant]
     Active Substance: FUROSEMIDE
     Indication: HYPERTENSION
     Route: 065
  7. AMLOR [Suspect]
     Active Substance: AMLODIPINE BESYLATE
     Indication: HYPERTENSION
     Dosage: THE DOSAGE OF AMLOR WAS INCREASED TO 5 MG TWICE DAILY BETWEEN DEC-2016 AND FEB-2017
     Route: 048
     Dates: start: 201610
  8. ROACTEMRA [Suspect]
     Active Substance: TOCILIZUMAB
     Route: 041
     Dates: start: 20170202

REACTIONS (2)
  - Acute coronary syndrome [Recovered/Resolved]
  - Troponin T increased [Recovering/Resolving]

NARRATIVE: CASE EVENT DATE: 20170228
